FAERS Safety Report 7963255-2 (Version None)
Quarter: 2011Q4

REPORT INFORMATION
  Report Type: 
  Country: None (occurrence: None)
  Receive Date: 20111208
  Receipt Date: 20111128
  Transmission Date: 20120403
  Serious: Yes (Hospitalization)
  Sender: FDA-Public Use
  Company Number: US-BIOGENIDEC-2011BI039948

PATIENT
  Age: 53 Year
  Sex: Female

DRUGS (18)
  1. POTASSIUM CHLORIDE ER [Concomitant]
  2. TYSABRI [Suspect]
     Indication: MULTIPLE SCLEROSIS
     Route: 042
     Dates: start: 20110515, end: 20110817
  3. NEURONTIN [Concomitant]
  4. DIAZEPAM [Concomitant]
  5. LASIX [Concomitant]
  6. CYCLOBENZAPRINE [Concomitant]
  7. PROMETHAZINE [Concomitant]
     Indication: NAUSEA
  8. ZOLPIDEM [Concomitant]
  9. COUMADIN [Concomitant]
  10. THIORIDAZINE HCL [Concomitant]
  11. NORCO 5/325 [Concomitant]
     Indication: PAIN
  12. PREDNISONE TAB [Concomitant]
  13. HYDROCODONE/ ACETAMINOPHEN 5/325 [Concomitant]
     Indication: PAIN
  14. COUMADIN [Concomitant]
  15. LACTULOSE [Concomitant]
  16. MYCOPHENOLATE MOFETIL (CELLCEPT) [Concomitant]
  17. PREDNISONE TAB [Concomitant]
     Indication: MULTIPLE SCLEROSIS
  18. BISACODYL [Concomitant]
     Indication: CONSTIPATION
     Route: 054

REACTIONS (1)
  - MULTIPLE SCLEROSIS RELAPSE [None]
